FAERS Safety Report 19501913 (Version 1)
Quarter: 2021Q3

REPORT INFORMATION
  Report Type: Spontaneous
  Country: US (occurrence: US)
  Receive Date: 20210707
  Receipt Date: 20210707
  Transmission Date: 20211014
  Serious: Yes (Other)
  Sender: FDA-Public Use
  Company Number: US-PFIZER INC-2021766958

PATIENT
  Age: 50 Year
  Sex: Female
  Weight: 60.33 kg

DRUGS (1)
  1. XELJANZ XR [Suspect]
     Active Substance: TOFACITINIB CITRATE
     Indication: PSORIATIC ARTHROPATHY
     Dosage: 11 UNK, 1X/DAY
     Route: 048

REACTIONS (2)
  - Pneumonia [Recovering/Resolving]
  - Blood cholesterol increased [Unknown]
